FAERS Safety Report 15273019 (Version 1)
Quarter: 2018Q3

REPORT INFORMATION
  Report Type: Spontaneous
  Country: US (occurrence: US)
  Receive Date: 20180813
  Receipt Date: 20180813
  Transmission Date: 20181010
  Serious: No
  Sender: FDA-Public Use
  Company Number: US-PURDUE-USA-2018-0143659

PATIENT
  Age: 40 Year
  Sex: Male

DRUGS (6)
  1. BUTRANS [Suspect]
     Active Substance: BUPRENORPHINE
     Dosage: 5 MCG/HR, WEEKLY
     Route: 062
     Dates: start: 201805
  2. BUTRANS [Suspect]
     Active Substance: BUPRENORPHINE
     Indication: PAIN MANAGEMENT
     Dosage: 5 MCG/HR, WEEKLY
     Route: 062
     Dates: start: 201803
  3. BUTRANS [Suspect]
     Active Substance: BUPRENORPHINE
     Dosage: 15 MCG/HR, WEEKLY
     Route: 062
  4. OXYCODONE [Concomitant]
     Active Substance: OXYCODONE
     Indication: SURGERY
     Dosage: 5 MG 6 X DAILY
     Route: 048
     Dates: start: 2017, end: 201802
  5. OXYCODONE [Concomitant]
     Active Substance: OXYCODONE
     Dosage: 30MG 6 X DAILY
     Route: 048
     Dates: start: 2017, end: 201802
  6. BUTRANS [Suspect]
     Active Substance: BUPRENORPHINE
     Indication: PRODUCT USE IN UNAPPROVED INDICATION
     Dosage: 10 MCG/HR, WEEKLY
     Route: 062

REACTIONS (2)
  - Insomnia [Recovering/Resolving]
  - Restlessness [Recovering/Resolving]

NARRATIVE: CASE EVENT DATE: 20180515
